FAERS Safety Report 5122275-6 (Version None)
Quarter: 2006Q4

REPORT INFORMATION
  Report Type: 
  Country: None (occurrence: None)
  Receive Date: 20061006
  Receipt Date: 20060927
  Transmission Date: 20070319
  Serious: Yes (Other)
  Sender: FDA-Public Use
  Company Number: JP-BRISTOL-MYERS SQUIBB COMPANY-13525480

PATIENT
  Age: 71 Year
  Sex: Male

DRUGS (3)
  1. FUNGIZONE [Suspect]
     Indication: PULMONARY MYCOSIS
  2. FLUCONAZOLE [Concomitant]
     Indication: INFECTION
  3. FUNGUARD [Concomitant]
     Indication: INFECTION
     Route: 041

REACTIONS (1)
  - PANCYTOPENIA [None]
